FAERS Safety Report 12934478 (Version 1)
Quarter: 2016Q4

REPORT INFORMATION
  Report Type: Spontaneous
  Country: CN (occurrence: CN)
  Receive Date: 20161111
  Receipt Date: 20161111
  Transmission Date: 20170207
  Serious: Yes (Hospitalization, Other)
  Sender: FDA-Public Use
  Company Number: CN-ELI_LILLY_AND_COMPANY-CN201611001947

PATIENT
  Sex: Male
  Weight: 99 kg

DRUGS (1)
  1. HUMALOG MIX75/25 [Suspect]
     Active Substance: INSULIN LISPRO
     Indication: DIABETES MELLITUS
     Dosage: 25 U, BID
     Route: 058
     Dates: start: 20100101, end: 20160718

REACTIONS (2)
  - Blood glucose abnormal [Recovering/Resolving]
  - Weight increased [Recovering/Resolving]
